FAERS Safety Report 24705315 (Version 1)
Quarter: 2024Q4

REPORT INFORMATION
  Report Type: Spontaneous
  Country: DE (occurrence: DE)
  Receive Date: 20241206
  Receipt Date: 20241206
  Transmission Date: 20250115
  Serious: Yes (Other)
  Sender: AUROBINDO
  Company Number: DE-BRISTOL-MYERS SQUIBB COMPANY-2024-179001

PATIENT
  Age: 69 Year
  Sex: Female
  Weight: 51 kg

DRUGS (9)
  1. CARBOPLATIN [Suspect]
     Active Substance: CARBOPLATIN
     Indication: Product used for unknown indication
     Dosage: UNK (2 CYCLES)
     Route: 065
     Dates: start: 20230302
  2. NIVOLUMAB [Suspect]
     Active Substance: NIVOLUMAB
     Indication: Non-small cell lung cancer
     Dosage: UNK
     Route: 065
     Dates: start: 20230219
  3. NIVOLUMAB [Suspect]
     Active Substance: NIVOLUMAB
     Dosage: 360 MILLIGRAM, EVERY 3 WEEKS
     Route: 065
     Dates: start: 20230302, end: 20231101
  4. IPILIMUMAB [Suspect]
     Active Substance: IPILIMUMAB
     Indication: Non-small cell lung cancer
     Dosage: UNK
     Route: 065
     Dates: start: 20230219
  5. IPILIMUMAB [Suspect]
     Active Substance: IPILIMUMAB
     Dosage: 1 MILLIGRAM/KILOGRAM, EVERY 6 WEEKS
     Route: 065
     Dates: start: 20230302, end: 20231101
  6. PEMETREXED [Suspect]
     Active Substance: PEMETREXED
     Indication: Product used for unknown indication
     Dosage: 500 MG/M2
     Route: 065
     Dates: start: 20230302
  7. LORLATINIB [Concomitant]
     Active Substance: LORLATINIB
     Indication: Product used for unknown indication
     Dosage: 100 MILLIGRAM, ONCE A DAY
     Route: 065
  8. PANTOPRAZOLE SODIUM [Concomitant]
     Active Substance: PANTOPRAZOLE SODIUM
     Indication: Product used for unknown indication
     Dosage: 40 MILLIGRAM, ONCE A DAY
     Route: 065
  9. ATORVASTATIN [Concomitant]
     Active Substance: ATORVASTATIN
     Indication: Product used for unknown indication
     Dosage: 40 MILLIGRAM, ONCE A DAY
     Route: 065

REACTIONS (4)
  - Non-small cell lung cancer [Unknown]
  - Psoriasis [Unknown]
  - General physical health deterioration [Unknown]
  - Off label use [Unknown]
